FAERS Safety Report 21558563 (Version 2)
Quarter: 2022Q4

REPORT INFORMATION
  Report Type: Spontaneous
  Country: IT (occurrence: IT)
  Receive Date: 20221107
  Receipt Date: 20221121
  Transmission Date: 20230113
  Serious: Yes (Hospitalization)
  Sender: FDA-Public Use
  Company Number: IT-BoehringerIngelheim-2022-BI-201288

PATIENT
  Age: 78 Year
  Sex: Male
  Weight: 80 kg

DRUGS (1)
  1. PRADAXA [Suspect]
     Active Substance: DABIGATRAN ETEXILATE MESYLATE
     Indication: Atrial flutter
     Dates: start: 202203, end: 20221103

REACTIONS (1)
  - Head injury [Recovered/Resolved]

NARRATIVE: CASE EVENT DATE: 20221103
